FAERS Safety Report 22260796 (Version 2)
Quarter: 2023Q2

REPORT INFORMATION
  Report Type: Spontaneous
  Country: CA (occurrence: CA)
  Receive Date: 20230427
  Receipt Date: 20230622
  Transmission Date: 20230722
  Serious: Yes (Other)
  Sender: FDA-Public Use
  Company Number: CA-PFIZER INC-202300170368

PATIENT
  Age: 13 Year
  Sex: Female

DRUGS (3)
  1. GENOTROPIN [Suspect]
     Active Substance: SOMATROPIN
     Indication: Turner^s syndrome
     Dosage: 1 DF, 1X/DAY, DOSE: 1.8 MG
     Route: 058
     Dates: start: 20200916
  2. GENOTROPIN [Suspect]
     Active Substance: SOMATROPIN
     Dosage: 2 MG, EVERY 6 DAY, 6X/WEEK
     Route: 058
  3. TRAZODONE [Concomitant]
     Active Substance: TRAZODONE HYDROCHLORIDE
     Indication: Insomnia
     Dosage: 25 MG, FREQ UNKNOWN
     Route: 048

REACTIONS (1)
  - Melaena [Not Recovered/Not Resolved]

NARRATIVE: CASE EVENT DATE: 20230401
